FAERS Safety Report 7745354-3 (Version None)
Quarter: 2011Q3

REPORT INFORMATION
  Report Type: 
  Country: None (occurrence: None)
  Receive Date: 20110913
  Receipt Date: 20110908
  Transmission Date: 20111222
  Serious: Yes (Hospitalization)
  Sender: FDA-Public Use
  Company Number: NL-AMGEN-NLDSP2011046218

PATIENT
  Age: 62 Year
  Sex: Female

DRUGS (4)
  1. TRAMADOL HYDROCHLORIDE [Concomitant]
  2. ACETAMINOPHEN [Concomitant]
  3. NEULASTA [Suspect]
     Indication: PRODUCT USED FOR UNKNOWN INDICATION
  4. DEXAMETHASONE [Concomitant]
     Dosage: 4 MG, BID

REACTIONS (5)
  - GASTROINTESTINAL INFECTION [None]
  - DEHYDRATION [None]
  - PAIN [None]
  - PHARYNGITIS [None]
  - DIARRHOEA [None]
